FAERS Safety Report 8469803-0 (Version None)
Quarter: 2012Q2

REPORT INFORMATION
  Report Type: 
  Country: None (occurrence: None)
  Receive Date: 20120626
  Receipt Date: 20120614
  Transmission Date: 20120825
  Serious: Yes (Life-Threatening)
  Sender: FDA-Public Use
  Company Number: GB-MERCK-1206USA02940

PATIENT
  Age: 64 Year
  Sex: Male

DRUGS (9)
  1. THALIDOMIDE [Suspect]
     Indication: MULTIPLE MYELOMA
     Route: 065
  2. SULFAMETHOXAZOLE AND TRIMETHOPRIM [Concomitant]
     Route: 065
  3. FLUCONAZOLE [Concomitant]
     Route: 065
  4. ACYCLOVIR [Concomitant]
     Route: 065
  5. BENDAMUSTINE [Suspect]
     Indication: MULTIPLE MYELOMA
     Route: 042
  6. ONDANSETRON [Concomitant]
     Route: 065
  7. LANSOPRAZOLE [Concomitant]
     Route: 065
  8. DECADRON [Suspect]
     Indication: MULTIPLE MYELOMA
     Route: 048
  9. BENDAMUSTINE [Suspect]
     Route: 042
     Dates: start: 20110928, end: 20120509

REACTIONS (4)
  - DIARRHOEA [None]
  - ELECTROLYTE IMBALANCE [None]
  - BLOOD MAGNESIUM DECREASED [None]
  - HYPOKALAEMIA [None]
